FAERS Safety Report 7732382-7 (Version None)
Quarter: 2011Q3

REPORT INFORMATION
  Report Type: 
  Country: None (occurrence: None)
  Receive Date: 20110906
  Receipt Date: 20110829
  Transmission Date: 20111222
  Serious: Yes (Other)
  Sender: FDA-Public Use
  Company Number: US-ABBOTT-11P-163-0845205-00

PATIENT
  Sex: Female
  Weight: 108.96 kg

DRUGS (9)
  1. PANTOPRAZOLE [Concomitant]
     Indication: GASTROOESOPHAGEAL REFLUX DISEASE
     Dosage: AS NEEDED
  2. ZYTEC [Concomitant]
     Indication: HYPERSENSITIVITY
     Dosage: AS NEEDED
  3. ALBUTEROL SULFATE AUTOHALER [Concomitant]
     Indication: ASTHMA
     Dosage: AS NEEDED
  4. UNKNOWN MEDICATION [Concomitant]
     Indication: SEASONAL ALLERGY
  5. UNKNOWN CHOLESTEROL DRUG [Concomitant]
     Indication: HYPERLIPIDAEMIA
  6. SIMVASTATIN [Concomitant]
     Indication: BLOOD CHOLESTEROL INCREASED
  7. HUMIRA [Suspect]
     Indication: PSORIATIC ARTHROPATHY
     Dates: start: 20110601, end: 20110801
  8. LEVOTHYROXINE SODIUM [Concomitant]
     Indication: HYPOTHYROIDISM
  9. EPIPEN [Concomitant]
     Indication: HYPERSENSITIVITY

REACTIONS (5)
  - SKIN DEPIGMENTATION [None]
  - BASAL CELL CARCINOMA [None]
  - CENTRAL NERVOUS SYSTEM LESION [None]
  - PRURITUS [None]
  - RED BLOOD CELL SEDIMENTATION RATE DECREASED [None]
